FAERS Safety Report 21800989 (Version 1)
Quarter: 2022Q4

REPORT INFORMATION
  Report Type: Spontaneous
  Country: US (occurrence: None)
  Receive Date: 20221229
  Receipt Date: 20221229
  Transmission Date: 20230113
  Serious: Yes (Other)
  Sender: FDA-Public Use
  Company Number: None

PATIENT
  Age: 52 Year
  Sex: Female
  Weight: 71.1 kg

DRUGS (11)
  1. SEREVENT DISKUS [Suspect]
     Active Substance: SALMETEROL XINAFOATE
     Indication: Asthma
     Dosage: OTHER STRENGTH : MCG;?OTHER QUANTITY : 1 INHALATION(S);?FREQUENCY : TWICE A DAY;?
     Route: 055
     Dates: start: 20220908, end: 20221115
  2. ALBUTEROL [Concomitant]
     Active Substance: ALBUTEROL
  3. GABAPENTIN [Concomitant]
     Active Substance: GABAPENTIN
  4. BACLOFEN [Concomitant]
     Active Substance: BACLOFEN
  5. MELOXICAM [Concomitant]
     Active Substance: MELOXICAM
  6. MONTELUKAST [Concomitant]
     Active Substance: MONTELUKAST SODIUM
  7. SPIRIVA [Concomitant]
     Active Substance: TIOTROPIUM BROMIDE MONOHYDRATE
  8. TAGAMET [Concomitant]
     Active Substance: CIMETIDINE
  9. FEXOFENADINE [Concomitant]
     Active Substance: FEXOFENADINE HYDROCHLORIDE
  10. VITAMIN B12 [Concomitant]
     Active Substance: CYANOCOBALAMIN
  11. TYLENOL REGULAR STRENGTH [Concomitant]
     Active Substance: ACETAMINOPHEN

REACTIONS (10)
  - Blister [None]
  - Pain of skin [None]
  - Lip swelling [None]
  - Lip blister [None]
  - Lip haemorrhage [None]
  - Oral mucosal erythema [None]
  - Pharyngeal erythema [None]
  - Throat irritation [None]
  - Scab [None]
  - Respiratory tract congestion [None]

NARRATIVE: CASE EVENT DATE: 20221115
